FAERS Safety Report 5399412-1 (Version None)
Quarter: 2007Q3

REPORT INFORMATION
  Report Type: 
  Country: None (occurrence: None)
  Receive Date: 20070727
  Receipt Date: 20070724
  Transmission Date: 20080115
  Serious: Yes (Other)
  Sender: FDA-Public Use
  Company Number: GB-BRISTOL-MYERS SQUIBB COMPANY-13856497

PATIENT
  Age: 6 Decade
  Sex: Male

DRUGS (3)
  1. SUSTIVA [Suspect]
  2. VIDEX [Suspect]
  3. ZERIT [Suspect]

REACTIONS (1)
  - HEPATIC CIRRHOSIS [None]
